FAERS Safety Report 18466459 (Version 8)
Quarter: 2021Q1

REPORT INFORMATION
  Report Type: Report from Study
  Country: US (occurrence: US)
  Receive Date: 20201104
  Receipt Date: 20210215
  Transmission Date: 20210419
  Serious: Yes (Death, Life-Threatening, Hospitalization)
  Sender: FDA-Public Use
  Company Number: US-ROCHE-2706721

PATIENT
  Age: 78 Year
  Sex: Male
  Weight: 100 kg

DRUGS (58)
  1. AMLODIPINE [Concomitant]
     Active Substance: AMLODIPINE BESYLATE
     Indication: HYPERTENSION
     Dates: end: 20201030
  2. ISOSORBIDE MONONITRATE. [Concomitant]
     Active Substance: ISOSORBIDE MONONITRATE
     Indication: CORONARY ARTERY DISEASE
     Dates: end: 20201030
  3. ENOXAPARIN [Concomitant]
     Active Substance: ENOXAPARIN
     Indication: THROMBOSIS PROPHYLAXIS
     Dates: start: 20201015, end: 20201026
  4. PROPOFOL. [Concomitant]
     Active Substance: PROPOFOL
     Route: 041
     Dates: start: 20201017, end: 20201025
  5. SODIUM ZIRCONIUM CYCLOSILICATE. [Concomitant]
     Active Substance: SODIUM ZIRCONIUM CYCLOSILICATE
     Dates: start: 20201025, end: 20201027
  6. OXYGEN. [Concomitant]
     Active Substance: OXYGEN
     Dosage: 50 L/MIN, SAME DOSE RECEIVED ON 21/OCT/2020,  22/OCT/2020, 25/OCT/2020
     Route: 055
     Dates: start: 20201016
  7. INSULIN GLARGINE [Concomitant]
     Active Substance: INSULIN GLARGINE
     Indication: GLUCOSE TOLERANCE IMPAIRED
     Dates: start: 20201025, end: 20201030
  8. MICAFUNGIN. [Concomitant]
     Active Substance: MICAFUNGIN SODIUM
     Dates: start: 20201029, end: 20201029
  9. OXYCODONE [Concomitant]
     Active Substance: OXYCODONE
     Indication: SEDATION
     Dates: start: 20201018, end: 20201018
  10. OXYGEN. [Concomitant]
     Active Substance: OXYGEN
     Route: 007
     Dates: start: 20201028
  11. COLCHICINE. [Concomitant]
     Active Substance: COLCHICINE
     Indication: GOUT
     Dates: end: 20201030
  12. FINASTERIDE. [Concomitant]
     Active Substance: FINASTERIDE
     Indication: LOWER URINARY TRACT SYMPTOMS
     Dates: end: 20201030
  13. FLUTICASONE. [Concomitant]
     Active Substance: FLUTICASONE
     Indication: RHINITIS
     Dates: end: 20201030
  14. NYSTATIN. [Concomitant]
     Active Substance: NYSTATIN
     Indication: INTERTRIGO
     Route: 061
     Dates: end: 20201030
  15. DEXAMETHASONE. [Concomitant]
     Active Substance: DEXAMETHASONE
     Indication: COVID-19
     Dates: start: 20201015, end: 20201024
  16. HYDROMORPHONE [Concomitant]
     Active Substance: HYDROMORPHONE
     Indication: SEDATION
     Dates: start: 20201015, end: 20201016
  17. REMDESIVIR. [Suspect]
     Active Substance: REMDESIVIR
     Dosage: MAINTAINANCE DOSE.THE DATE OF MOST RECENT DOSE OF REMDESIVIR PRIOR TO AE ONSET: 17/OCT/2020 AT 2.55
     Route: 042
     Dates: start: 20201017
  18. ASPIRIN. [Concomitant]
     Active Substance: ASPIRIN
     Indication: CORONARY ARTERY DISEASE
     Dates: end: 20201030
  19. BENAZEPRIL [Concomitant]
     Active Substance: BENAZEPRIL HYDROCHLORIDE
     Indication: HYPERTENSION
     Dates: end: 20201030
  20. METOPROLOL. [Concomitant]
     Active Substance: METOPROLOL
     Indication: HYPERTENSION
     Dates: end: 20201030
  21. CHLORHEXIDINE [Concomitant]
     Active Substance: CHLORHEXIDINE
     Dates: start: 20201017, end: 20201030
  22. DEXTROSE. [Concomitant]
     Active Substance: DEXTROSE
     Dates: start: 20201026, end: 20201027
  23. ETOMIDATE. [Concomitant]
     Active Substance: ETOMIDATE
     Dates: start: 20201017, end: 20201017
  24. INSULIN REGULAR [Concomitant]
     Active Substance: INSULIN NOS
     Indication: GLUCOSE TOLERANCE IMPAIRED
     Dates: start: 20201017, end: 20201030
  25. POTASSIUM CHLORIDE. [Concomitant]
     Active Substance: POTASSIUM CHLORIDE
     Dates: start: 20201028, end: 20201028
  26. QUETIAPINE. [Concomitant]
     Active Substance: QUETIAPINE
     Dates: start: 20201020, end: 20201025
  27. INSULIN LISPRO [Concomitant]
     Active Substance: INSULIN LISPRO
     Indication: GLUCOSE TOLERANCE IMPAIRED
     Dates: start: 20201016, end: 20201030
  28. MAGNESIUM HYDROXIDE. [Concomitant]
     Active Substance: MAGNESIUM HYDROXIDE
     Indication: ABDOMINAL PAIN
     Dates: start: 20201022, end: 20201022
  29. PIPERACILLIN AND TAZOBACTAM [Concomitant]
     Active Substance: PIPERACILLIN SODIUM\TAZOBACTAM SODIUM
     Dates: start: 20201026, end: 20201030
  30. POLYETHYLENE GLYCOL 3350. [Concomitant]
     Active Substance: POLYETHYLENE GLYCOL 3350
     Indication: CONSTIPATION PROPHYLAXIS
     Dates: start: 20201020, end: 20201030
  31. HYDRALAZINE [Concomitant]
     Active Substance: HYDRALAZINE HYDROCHLORIDE
     Indication: HYPERTENSION
     Dates: start: 20201015, end: 20201015
  32. OXYGEN. [Concomitant]
     Active Substance: OXYGEN
     Dosage: SAME DOSE RECEIVED ON 28/OCT/2020
     Route: 007
     Dates: start: 20201029
  33. ATORVASTATIN [Concomitant]
     Active Substance: ATORVASTATIN
     Indication: HYPERLIPIDAEMIA
     Dates: end: 20201030
  34. OMEPRAZOLE. [Concomitant]
     Active Substance: OMEPRAZOLE
     Indication: GASTROOESOPHAGEAL REFLUX DISEASE
     Dates: end: 20201030
  35. FAMOTIDINE. [Concomitant]
     Active Substance: FAMOTIDINE
     Indication: GASTROOESOPHAGEAL REFLUX DISEASE
     Dates: start: 20201015, end: 20201030
  36. LASIX [Concomitant]
     Active Substance: FUROSEMIDE
     Dates: start: 20201016, end: 20201026
  37. HEPARIN [Concomitant]
     Active Substance: HEPARIN SODIUM
     Indication: THROMBOSIS PROPHYLAXIS
     Dates: start: 20201027, end: 20201030
  38. METOCLOPRAMIDE. [Concomitant]
     Active Substance: METOCLOPRAMIDE
     Indication: ABDOMINAL PAIN
     Dates: start: 20201016, end: 20201016
  39. QUETIAPINE. [Concomitant]
     Active Substance: QUETIAPINE
     Indication: SEDATION
     Dates: start: 20201019, end: 20201019
  40. OXYGEN. [Concomitant]
     Active Substance: OXYGEN
     Dosage: 55 L/MIN
     Route: 055
     Dates: start: 20201016
  41. REMDESIVIR. [Suspect]
     Active Substance: REMDESIVIR
     Indication: COVID-19 PNEUMONIA
     Dosage: LOADING DOSE. REMDESIVIR 200 MG LOADING DOSE (PATIENTS WILL SUBSEQUENTLY BE ADMINISTERED A 100 MG ON
     Route: 042
     Dates: start: 20201015, end: 20201015
  42. REMDESIVIR. [Suspect]
     Active Substance: REMDESIVIR
     Route: 042
     Dates: start: 20201016, end: 20201016
  43. FENTANYL. [Concomitant]
     Active Substance: FENTANYL
     Indication: SEDATION
     Dates: start: 20201030, end: 20201030
  44. IOPAMIDOL [Concomitant]
     Active Substance: IOPAMIDOL
     Dates: start: 20201023, end: 20201023
  45. MAGNESIUM SULFATE. [Concomitant]
     Active Substance: MAGNESIUM SULFATE
     Indication: GLUCOSE TOLERANCE IMPAIRED
     Dates: start: 20201016, end: 20201016
  46. VANCOMYCIN [Concomitant]
     Active Substance: VANCOMYCIN
     Indication: COVID-19 PNEUMONIA
     Dates: start: 20201024, end: 20201029
  47. LORAZEPAM. [Concomitant]
     Active Substance: LORAZEPAM
     Indication: SEDATION
     Dates: start: 20201030, end: 20201030
  48. OXYGEN. [Concomitant]
     Active Substance: OXYGEN
     Route: 007
     Dates: start: 20201021
  49. TOCILIZUMAB. [Suspect]
     Active Substance: TOCILIZUMAB
     Indication: COVID-19 PNEUMONIA
     Dosage: THE DATE OF MOST RECENT DOSE OF BLINDED TOCILIZUMAB PRIOR TO SAE (SERIOUS ADVERSE EVENT) AND AE ONSE
     Route: 042
     Dates: start: 20201017
  50. FLOMAX [Concomitant]
     Active Substance: TAMSULOSIN HYDROCHLORIDE
     Indication: LOWER URINARY TRACT SYMPTOMS
     Dates: end: 20201030
  51. IOPAMIDOL [Concomitant]
     Active Substance: IOPAMIDOL
     Dates: start: 20201015, end: 20201015
  52. LACTATED RINGERS SOLUTION [Concomitant]
     Active Substance: CALCIUM CHLORIDE\POTASSIUM CHLORIDE\SODIUM CHLORIDE\SODIUM LACTATE
     Dates: start: 20201015, end: 20201030
  53. PROPOFOL. [Concomitant]
     Active Substance: PROPOFOL
     Indication: SEDATION
     Dates: start: 20201017, end: 20201017
  54. ROCURONIUM [Concomitant]
     Active Substance: ROCURONIUM BROMIDE
     Indication: SEDATION
     Dates: start: 20201017, end: 20201017
  55. SULFUR HEXAFLUORIDE [Concomitant]
     Active Substance: SULFUR HEXAFLUORIDE
     Dates: start: 20201029, end: 20201029
  56. ACETAMINOPHEN. [Concomitant]
     Active Substance: ACETAMINOPHEN
     Indication: PYREXIA
     Dates: start: 20201026, end: 20201029
  57. OXYGEN. [Concomitant]
     Active Substance: OXYGEN
     Dosage: DOSE NOT REPORTED (%) AND ALSO RECEIVED ON 24/OCT/2020, 26/OCT/2020, 27/OCT/2020, 17/OCT/2020, 19/OC
     Route: 007
     Dates: start: 20201018
  58. OXYGEN. [Concomitant]
     Active Substance: OXYGEN
     Dosage: SAME DOSE ALSO RECEIVED ON 22/OCT/2020, 29/OCT/2020, 30/OCT/2020
     Route: 007
     Dates: start: 20201026

REACTIONS (2)
  - Neurotoxicity [Not Recovered/Not Resolved]
  - Septic shock [Fatal]

NARRATIVE: CASE EVENT DATE: 20201018
